FAERS Safety Report 4366153-9 (Version None)
Quarter: 2004Q2

REPORT INFORMATION
  Report Type: 
  Country: None (occurrence: None)
  Receive Date: 20040524
  Receipt Date: 20040513
  Transmission Date: 20050107
  Serious: Yes (Hospitalization)
  Sender: FDA-Public Use
  Company Number: 2004210557JP

PATIENT
  Age: 21 Year
  Sex: Female

DRUGS (6)
  1. ALPRAZOLAM [Suspect]
     Dosage: 15.4 MG, SINGLE, ORAL
     Route: 048
     Dates: end: 20040101
  2. ROHYPNOL(FLUNITRAZEPAM) [Suspect]
     Dosage: 12 MG, ORAL
     Route: 048
  3. ANAFRANIL [Suspect]
     Dosage: 120MG/DAY, ORAL
     Route: 048
  4. MELLERIL(THIORIDAZINE HYDROCHLORIDE) [Suspect]
     Dosage: 360 MG/DAY, ORAL
     Route: 048
  5. AMOXAPINE [Suspect]
     Dosage: 900 MG/DAY, ORAL
     Route: 048
  6. MACTASE (DEHYDROCHOLIC ACID, OX BILE EXTRCT, MOLSIN, DIASTASE, POLYPAS [Concomitant]

REACTIONS (3)
  - DRUG DEPENDENCE [None]
  - OVERDOSE [None]
  - SOMNOLENCE [None]
